FAERS Safety Report 8923491 (Version 1)
Quarter: 2012Q4

REPORT INFORMATION
  Report Type: Spontaneous
  Country: DK (occurrence: None)
  Receive Date: 20121114
  Receipt Date: 20121114
  Transmission Date: 20130627
  Serious: Yes (Other)
  Sender: FDA-Public Use
  Company Number: 2012MA013300

PATIENT
  Age: 46 Year
  Sex: Female

DRUGS (3)
  1. RAMIPRIL [Suspect]
     Indication: HYPERTENSION
     Route: 048
     Dates: start: 201210, end: 201210
  2. DIKLOFENAK [Concomitant]
  3. BROMAZEPAM [Concomitant]

REACTIONS (3)
  - Face oedema [None]
  - Renal pain [None]
  - Bladder pain [None]
